FAERS Safety Report 9749347 (Version 1)
Quarter: 2013Q4

REPORT INFORMATION
  Report Type: Spontaneous
  Country: FR (occurrence: FR)
  Receive Date: 20131212
  Receipt Date: 20131212
  Transmission Date: 20140711
  Serious: Yes (Hospitalization)
  Sender: FDA-Public Use
  Company Number: FR-009507513-1312FRA000473

PATIENT
  Age: 74 Year
  Sex: Male

DRUGS (7)
  1. ORGARAN [Suspect]
     Indication: PULMONARY EMBOLISM
     Dosage: UNK
     Route: 058
     Dates: start: 20130903, end: 20130910
  2. AUGMENTIN [Concomitant]
     Indication: CHRONIC MYELOMONOCYTIC LEUKAEMIA
     Dosage: 3 DF, UNK
     Route: 042
     Dates: start: 20130830
  3. EUPANTOL [Concomitant]
     Dosage: 1 DF, QD
     Route: 048
     Dates: start: 20130810
  4. CIPROFLOXACIN [Concomitant]
     Dosage: UNK
     Route: 042
     Dates: start: 20130830
  5. HYDREA [Concomitant]
     Dosage: 1 DF, QOD
     Route: 048
  6. LEVOTHYROX [Concomitant]
     Dosage: 200 MICROGRAM, QAM
     Route: 065
  7. KARDEGIC [Concomitant]
     Dosage: 100 MG, QD
     Route: 048

REACTIONS (1)
  - Catheter site haematoma [Recovered/Resolved]
